FAERS Safety Report 18996921 (Version 2)
Quarter: 2021Q3

REPORT INFORMATION
  Report Type: Other
  Country: US (occurrence: US)
  Receive Date: 20210311
  Receipt Date: 20210831
  Transmission Date: 20211014
  Serious: Yes (Other)
  Sender: FDA-Public Use
  Company Number: US-ROCHE-2787397

PATIENT
  Age: 74 Year
  Sex: Female
  Weight: 47.67 kg

DRUGS (7)
  1. ESBRIET [Suspect]
     Active Substance: PIRFENIDONE
     Dosage: 1 TABLET THREE TIMES DAILY.
     Route: 048
  2. ASPIRIN. [Concomitant]
     Active Substance: ASPIRIN
  3. ESBRIET [Suspect]
     Active Substance: PIRFENIDONE
     Indication: IDIOPATHIC PULMONARY FIBROSIS
     Dosage: TAKE 3 CAPSULE(S) BY MOUTH 3 TIMES A DAY
     Route: 048
     Dates: start: 2015
  4. BLOOD THINNER (UNK INGREDIENTS) [Concomitant]
  5. INHALER (UNK INGREDIENTS) [Concomitant]
  6. ANTIBIOTICS (UNK INGREDIENTS) [Concomitant]
  7. NEBULIZER (UNK INGREDIENTS) [Concomitant]
     Dosage: USE MORNING AND AFTERNOON

REACTIONS (1)
  - Myocardial infarction [Recovered/Resolved]

NARRATIVE: CASE EVENT DATE: 20210124
